FAERS Safety Report 25941043 (Version 1)
Quarter: 2025Q4

REPORT INFORMATION
  Report Type: Spontaneous
  Country: US (occurrence: None)
  Receive Date: 20251018
  Receipt Date: 20251018
  Transmission Date: 20260118
  Serious: Yes (Other)
  Sender: FDA-CTU
  Company Number: None

PATIENT
  Age: 63 Year
  Sex: Female
  Weight: 63 kg

DRUGS (8)
  1. CLINDAMYCIN [Suspect]
     Active Substance: CLINDAMYCIN
     Indication: Tooth extraction
     Dosage: FREQUENCY : AS NEEDED;?
     Route: 048
     Dates: start: 20231009, end: 20231009
  2. SYNTHROID [Concomitant]
     Active Substance: LEVOTHYROXINE SODIUM
  3. ZYRTEC [Concomitant]
     Active Substance: CETIRIZINE HYDROCHLORIDE
  4. SINGULAIR [Concomitant]
     Active Substance: MONTELUKAST SODIUM
  5. Mesalamin [Concomitant]
  6. CALCIUM\VITAMIN D [Concomitant]
     Active Substance: CALCIUM\VITAMIN D
  7. ZEPBOUND [Concomitant]
     Active Substance: TIRZEPATIDE
  8. VITAMIN B12 [Concomitant]
     Active Substance: CYANOCOBALAMIN

REACTIONS (10)
  - Near death experience [None]
  - Pruritus [None]
  - Middle insomnia [None]
  - Dizziness [None]
  - Loss of consciousness [None]
  - Face injury [None]
  - Nasal injury [None]
  - Limb injury [None]
  - Haemorrhage [None]
  - Oral pain [None]

NARRATIVE: CASE EVENT DATE: 20231010
